FAERS Safety Report 13306626 (Version 1)
Quarter: 2017Q1

REPORT INFORMATION
  Report Type: Spontaneous
  Country: US (occurrence: US)
  Receive Date: 20170308
  Receipt Date: 20170308
  Transmission Date: 20170428
  Serious: No
  Sender: FDA-Public Use
  Company Number: US-AKORN PHARMACEUTICALS-2016AKN00781

PATIENT
  Age: 34 Year
  Sex: Male

DRUGS (1)
  1. MYORISAN [Suspect]
     Active Substance: ISOTRETINOIN
     Indication: ACNE
     Dosage: 40 MG, 1X/DAY
     Route: 048
     Dates: start: 20160824, end: 20161021

REACTIONS (2)
  - Dry skin [Recovered/Resolved]
  - Lip dry [Recovering/Resolving]

NARRATIVE: CASE EVENT DATE: 20160922
